FAERS Safety Report 25004473 (Version 1)
Quarter: 2025Q1

REPORT INFORMATION
  Report Type: Spontaneous
  Country: US (occurrence: US)
  Receive Date: 20250224
  Receipt Date: 20250224
  Transmission Date: 20250409
  Serious: No
  Sender: VERTEX
  Company Number: US-VERTEX PHARMACEUTICALS-2024-006629

PATIENT
  Age: 2 Year
  Sex: Male

DRUGS (3)
  1. TRIKAFTA [Suspect]
     Active Substance: ELEXACAFTOR\IVACAFTOR\TEZACAFTOR
     Indication: Cystic fibrosis
     Dosage: UNK, BID
     Route: 048
     Dates: start: 20240215, end: 2024
  2. TRIKAFTA [Suspect]
     Active Substance: ELEXACAFTOR\IVACAFTOR\TEZACAFTOR
     Route: 048
     Dates: start: 20240326, end: 2024
  3. TRIKAFTA [Suspect]
     Active Substance: ELEXACAFTOR\IVACAFTOR\TEZACAFTOR
     Dosage: AM DOSE IN PM, PM DOSE IN AM
     Route: 048
     Dates: start: 2024, end: 20250217

REACTIONS (6)
  - Initial insomnia [Not Recovered/Not Resolved]
  - Anger [Recovering/Resolving]
  - Screaming [Recovering/Resolving]
  - Mood swings [Recovering/Resolving]
  - Insomnia [Recovered/Resolved]
  - Crying [Recovering/Resolving]

NARRATIVE: CASE EVENT DATE: 20240221
